FAERS Safety Report 19175319 (Version 2)
Quarter: 2022Q2

REPORT INFORMATION
  Report Type: Spontaneous
  Country: US (occurrence: US)
  Receive Date: 20210423
  Receipt Date: 20220401
  Transmission Date: 20220721
  Serious: Yes (Other)
  Sender: FDA-Public Use
  Company Number: US-GLAXOSMITHKLINE-US2021GSK091376

PATIENT
  Sex: Male

DRUGS (15)
  1. ZANTAC [Suspect]
     Active Substance: RANITIDINE HYDROCHLORIDE
     Indication: Dyspepsia
     Dosage: 75 MG, WE
     Route: 065
     Dates: start: 198201, end: 201704
  2. ZANTAC [Suspect]
     Active Substance: RANITIDINE HYDROCHLORIDE
     Dosage: 75 MG, WE
     Route: 065
     Dates: start: 198201, end: 201704
  3. ZANTAC [Suspect]
     Active Substance: RANITIDINE HYDROCHLORIDE
     Dosage: UNK
  4. ZANTAC [Suspect]
     Active Substance: RANITIDINE HYDROCHLORIDE
     Indication: Dyspepsia
     Dosage: 75 MG, WE
     Route: 065
     Dates: start: 198201, end: 201704
  5. ZANTAC [Suspect]
     Active Substance: RANITIDINE HYDROCHLORIDE
     Dosage: 75 MG, WE
     Route: 065
     Dates: start: 198201, end: 201704
  6. ZANTAC [Suspect]
     Active Substance: RANITIDINE HYDROCHLORIDE
     Indication: Dyspepsia
     Dosage: 75 MG, WE
     Route: 065
     Dates: start: 198201, end: 201704
  7. ZANTAC [Suspect]
     Active Substance: RANITIDINE HYDROCHLORIDE
     Dosage: 75 MG, WE
     Route: 065
     Dates: start: 198201, end: 201704
  8. RANITIDINE [Suspect]
     Active Substance: RANITIDINE
     Indication: Dyspepsia
     Dosage: 150 MG, U
     Route: 065
     Dates: start: 199001, end: 201701
  9. RANITIDINE [Suspect]
     Active Substance: RANITIDINE
     Dosage: 75 MG, WE
     Route: 065
     Dates: start: 198201, end: 201704
  10. RANITIDINE [Suspect]
     Active Substance: RANITIDINE
     Dosage: 150 MG, U
     Route: 065
     Dates: start: 199001, end: 201701
  11. ZANTAC [Suspect]
     Active Substance: RANITIDINE HYDROCHLORIDE
     Indication: Dyspepsia
     Dosage: UNK UNK, QD
     Route: 065
     Dates: start: 198109, end: 201806
  12. ZANTAC [Suspect]
     Active Substance: RANITIDINE HYDROCHLORIDE
     Dosage: UNK UNK, QD
     Route: 065
     Dates: start: 198109, end: 201806
  13. ZANTAC [Suspect]
     Active Substance: RANITIDINE HYDROCHLORIDE
     Dosage: UNK
  14. RANITIDINE [Suspect]
     Active Substance: RANITIDINE
     Indication: Dyspepsia
     Dosage: 150 MG, U
     Route: 065
     Dates: start: 199001, end: 201701
  15. RANITIDINE [Suspect]
     Active Substance: RANITIDINE
     Dosage: 150 MG, U
     Route: 065
     Dates: start: 199001, end: 201701

REACTIONS (2)
  - Bladder cancer [Unknown]
  - Oesophageal carcinoma [Unknown]
